FAERS Safety Report 4996962-4 (Version None)
Quarter: 2006Q2

REPORT INFORMATION
  Report Type: 
  Country: None (occurrence: None)
  Receive Date: 20060509
  Receipt Date: 20060503
  Transmission Date: 20061013
  Serious: Yes (Other)
  Sender: FDA-Public Use
  Company Number: US-ROCHE-446704

PATIENT
  Age: 35 Year
  Sex: Female

DRUGS (1)
  1. ZENAPAX [Suspect]
     Indication: MULTIPLE SCLEROSIS
     Route: 065

REACTIONS (2)
  - PERICARDIAL EFFUSION [None]
  - PLEURAL EFFUSION [None]
